FAERS Safety Report 8322756-8 (Version None)
Quarter: 2012Q2

REPORT INFORMATION
  Report Type: 
  Country: None (occurrence: None)
  Receive Date: 20120430
  Receipt Date: 20120423
  Transmission Date: 20120825
  Serious: Yes (Other)
  Sender: FDA-Public Use
  Company Number: US-BAYER-2012-038521

PATIENT
  Age: 27 Year
  Sex: Female

DRUGS (8)
  1. PREDNISONE [Concomitant]
     Dosage: 10 MG, UNK
  2. FLEXERIL [Concomitant]
     Indication: BACK PAIN
     Dosage: 10 MG, DAILY
  3. PREDNISONE [Concomitant]
     Indication: BACK PAIN
     Dosage: 30 MG, DAILY
  4. YASMIN [Suspect]
     Indication: CONTRACEPTION
     Dosage: UNK
     Dates: start: 20011201, end: 20020401
  5. YASMIN [Suspect]
     Indication: MENSTRUATION IRREGULAR
  6. TYLENOL W/ CODEINE NO. 3 [Concomitant]
     Dosage: ONE DAILY
  7. OXYCODONE HCL [Concomitant]
     Indication: BACK PAIN
     Dosage: 5 MG, FOUR TIMES DAILY AS NEEDED
  8. PREDNISONE [Concomitant]
     Dosage: 50 MG, DAILY

REACTIONS (6)
  - EMOTIONAL DISTRESS [None]
  - GENERAL PHYSICAL HEALTH DETERIORATION [None]
  - ANXIETY [None]
  - PAIN [None]
  - INJURY [None]
  - DEEP VEIN THROMBOSIS [None]
